FAERS Safety Report 9523113 (Version 4)
Quarter: 2013Q4

REPORT INFORMATION
  Report Type: Spontaneous
  Country: JP (occurrence: JP)
  Receive Date: 20130913
  Receipt Date: 20131029
  Transmission Date: 20140711
  Serious: Yes (Hospitalization, Other)
  Sender: FDA-Public Use
  Company Number: JP-BRISTOL-MYERS SQUIBB COMPANY-19390863

PATIENT
  Age: 50 Year
  Sex: Male
  Weight: 61.6 kg

DRUGS (10)
  1. ABILIFY ORAL SOLUTION [Suspect]
     Indication: SCHIZOPHRENIA
     Dosage: ABILIFY ORAL SOLUTION 0.1% PERCENT.LAST ADMINISTRATION WAS ON 25AUG2013
     Route: 048
     Dates: end: 20130825
  2. ZYPREXA ZYDIS [Suspect]
     Indication: SCHIZOPHRENIA
     Dosage: TABS
     Route: 048
  3. LEVOTOMIN [Suspect]
     Indication: SCHIZOPHRENIA
     Dosage: 150 MG:27-AUG-2013:DAILY:ORAL
     Route: 048
     Dates: start: 20130826
  4. LORAZEPAM [Concomitant]
     Dosage: TABS
  5. WYPAX [Concomitant]
     Dosage: TABS
  6. RESLIN TABS [Concomitant]
  7. DEPAS [Concomitant]
  8. LANDSEN [Concomitant]
     Dosage: TABS
  9. RIVOTRIL [Concomitant]
  10. ROZEREM [Concomitant]
     Dosage: TABS

REACTIONS (7)
  - Pulmonary embolism [Recovering/Resolving]
  - Fall [Unknown]
  - Loss of consciousness [Unknown]
  - Contusion [Unknown]
  - Skull fractured base [Unknown]
  - Jaw fracture [Unknown]
  - Deep vein thrombosis [Recovering/Resolving]
